FAERS Safety Report 6961378-8 (Version None)
Quarter: 2010Q3

REPORT INFORMATION
  Report Type: 
  Country: None (occurrence: None)
  Receive Date: 20100901
  Receipt Date: 20100725
  Transmission Date: 20110219
  Serious: Yes (Death, Hospitalization, Other)
  Sender: FDA-Public Use
  Company Number: PHHY2010JP51974

PATIENT
  Age: 71 Year
  Sex: Male

DRUGS (2)
  1. TERBINAFINE HCL [Suspect]
     Indication: ONYCHOMYCOSIS
     Dosage: 250MG PER DAY
     Route: 048
  2. TERBINAFINE HCL [Suspect]
     Dosage: 25 MG PER DAY

REACTIONS (26)
  - ABDOMINAL DISCOMFORT [None]
  - ABDOMINAL PAIN [None]
  - ABDOMINAL RIGIDITY [None]
  - ASCITES [None]
  - CYTOMEGALOVIRUS INFECTION [None]
  - DERMATITIS EXFOLIATIVE [None]
  - DRUG RASH WITH EOSINOPHILIA AND SYSTEMIC SYMPTOMS [None]
  - ERYTHEMA [None]
  - FLATULENCE [None]
  - HEPATIC ENZYME INCREASED [None]
  - ILEAL OPERATION [None]
  - ILEAL PERFORATION [None]
  - ILEECTOMY [None]
  - ILEOSTOMY [None]
  - LEUKOCYTOSIS [None]
  - LYMPHADENOPATHY [None]
  - OCCULT BLOOD POSITIVE [None]
  - PERITONITIS VIRAL [None]
  - PNEUMONIA [None]
  - PYREXIA [None]
  - RASH ERYTHEMATOUS [None]
  - RASH GENERALISED [None]
  - SEROCONVERSION TEST POSITIVE [None]
  - SWELLING [None]
  - VASCULITIS [None]
  - VIRAL TITRE INCREASED [None]
